FAERS Safety Report 4358219-4 (Version None)
Quarter: 2004Q2

REPORT INFORMATION
  Report Type: 
  Country: None (occurrence: None)
  Receive Date: 20040511
  Receipt Date: 20040428
  Transmission Date: 20050107
  Serious: Yes (Death, Hospitalization)
  Sender: FDA-Public Use
  Company Number: 2004029180

PATIENT
  Age: 87 Year
  Sex: Female

DRUGS (1)
  1. NORVASC [Suspect]
     Indication: HYPERTENSION

REACTIONS (5)
  - CHOLESTASIS [None]
  - HEPATITIS [None]
  - HEPATOCELLULAR DAMAGE [None]
  - PULMONARY EMBOLISM [None]
  - UROSEPSIS [None]
